FAERS Safety Report 5427545-X (Version None)
Quarter: 2007Q3

REPORT INFORMATION
  Report Type: 
  Country: None (occurrence: None)
  Receive Date: 20070828
  Receipt Date: 20070823
  Transmission Date: 20080115
  Serious: Yes (Death)
  Sender: FDA-Public Use
  Company Number: A0642875A

PATIENT
  Age: 87 Year
  Sex: Female

DRUGS (2)
  1. DARAPRIM [Suspect]
     Indication: DRUG USE FOR UNKNOWN INDICATION
     Route: 065
  2. DYAZIDE [Suspect]
     Dates: end: 19880101

REACTIONS (3)
  - DEATH [None]
  - KIDNEY INFECTION [None]
  - NEPHROLITHIASIS [None]
